FAERS Safety Report 13509781 (Version 1)
Quarter: 2017Q2

REPORT INFORMATION
  Report Type: Spontaneous
  Country: US (occurrence: US)
  Receive Date: 20170503
  Receipt Date: 20170503
  Transmission Date: 20170830
  Serious: No
  Sender: FDA-Public Use
  Company Number: US-SA-2017SA042344

PATIENT
  Sex: Male

DRUGS (14)
  1. DESONIDE. [Concomitant]
     Active Substance: DESONIDE
     Dosage: STRENGTH: 0.05%
  2. CURCUMIN [Concomitant]
     Active Substance: CURCUMIN
  3. CYMBALTA [Concomitant]
     Active Substance: DULOXETINE HYDROCHLORIDE
     Dosage: STRENGTH: 60MG
  4. ERYTHROMYCIN. [Concomitant]
     Active Substance: ERYTHROMYCIN
     Dosage: 5MG/GRAM
  5. NORCO [Concomitant]
     Active Substance: ACETAMINOPHEN\HYDROCODONE BITARTRATE
     Dosage: 10-325MG
  6. TESTOSTERONE. [Concomitant]
     Active Substance: TESTOSTERONE
     Dosage: 200MG
  7. ALIROCUMAB PREFILLED PEN [Concomitant]
     Active Substance: ALIROCUMAB
  8. OMEPRAZOLE. [Concomitant]
     Active Substance: OMEPRAZOLE
     Dosage: STRENGTH: 10MG
  9. DOXYCYCLINE HYCLATE. [Concomitant]
     Active Substance: DOXYCYCLINE HYCLATE
     Dosage: STRENGTH: 100MG
  10. DULOXETINE. [Concomitant]
     Active Substance: DULOXETINE
     Dosage: STRENGTH: 30MG
  11. KETOCONAZOLE. [Concomitant]
     Active Substance: KETOCONAZOLE
     Dosage: STRENGTH: 2%
  12. PRALUENT [Suspect]
     Active Substance: ALIROCUMAB
     Route: 058
  13. CEPHALEXIN. [Concomitant]
     Active Substance: CEPHALEXIN
     Dosage: STRENGTH: 500MG
  14. FISH OIL [Concomitant]
     Active Substance: FISH OIL
     Dosage: STRENGTH: 1000MG

REACTIONS (1)
  - Fatigue [Not Recovered/Not Resolved]
